FAERS Safety Report 18732623 (Version 2)
Quarter: 2021Q1

REPORT INFORMATION
  Report Type: Spontaneous
  Country: US (occurrence: US)
  Receive Date: 20210113
  Receipt Date: 20210122
  Transmission Date: 20210419
  Serious: No
  Sender: FDA-Public Use
  Company Number: US-GLAXOSMITHKLINE-US2021000463

PATIENT
  Sex: Female

DRUGS (1)
  1. BREO ELLIPTA [Suspect]
     Active Substance: FLUTICASONE FUROATE\VILANTEROL TRIFENATATE
     Indication: CHEST DISCOMFORT
     Dosage: 1 PUFF(S), QD, 200/25
     Route: 055
     Dates: end: 20201229

REACTIONS (4)
  - Oesophageal pain [Unknown]
  - Burning sensation [Unknown]
  - Respiratory tract irritation [Unknown]
  - Adverse drug reaction [Unknown]
